FAERS Safety Report 18955579 (Version 1)
Quarter: 2021Q1

REPORT INFORMATION
  Report Type: Spontaneous
  Country: IN (occurrence: IN)
  Receive Date: 20210301
  Receipt Date: 20210301
  Transmission Date: 20210420
  Serious: Yes (Death)
  Sender: FDA-Public Use
  Company Number: IN-PFIZER INC-2021201314

PATIENT
  Age: 56 Year
  Sex: Female

DRUGS (1)
  1. DACOMITINIB [Suspect]
     Active Substance: DACOMITINIB
     Dosage: 45 MG, 1X/DAY
     Route: 048
     Dates: start: 20210219

REACTIONS (1)
  - Death [Fatal]

NARRATIVE: CASE EVENT DATE: 202102
